FAERS Safety Report 10573442 (Version 1)
Quarter: 2014Q4

REPORT INFORMATION
  Report Type: Spontaneous
  Country: US (occurrence: US)
  Receive Date: 20141110
  Receipt Date: 20141110
  Transmission Date: 20150529
  Serious: No
  Sender: FDA-Public Use
  Company Number: US-ASTRAZENECA-2014SE83549

PATIENT
  Sex: Female

DRUGS (1)
  1. SYMBICORT [Suspect]
     Active Substance: BUDESONIDE\FORMOTEROL FUMARATE DIHYDRATE
     Dosage: 320MCG, 2 PUFFS BID
     Route: 055

REACTIONS (6)
  - Dyspnoea [Unknown]
  - Disturbance in attention [Unknown]
  - Intentional product misuse [Unknown]
  - Drug dose omission [Unknown]
  - Hypoacusis [Unknown]
  - Confusional state [Unknown]
